FAERS Safety Report 8593207-3 (Version None)
Quarter: 2012Q3

REPORT INFORMATION
  Report Type: 
  Country: None (occurrence: None)
  Receive Date: 20120814
  Receipt Date: 20120810
  Transmission Date: 20120928
  Serious: Yes (Death)
  Sender: FDA-Public Use
  Company Number: CA-UCBSA-062999

PATIENT
  Age: 21 Year
  Sex: Male
  Weight: 137 kg

DRUGS (9)
  1. LAMOTRIGINE [Concomitant]
     Route: 048
     Dates: start: 20120504, end: 20120628
  2. LAMOTRIGINE [Concomitant]
     Route: 048
     Dates: start: 20120420, end: 20120426
  3. LAMOTRIGINE [Concomitant]
     Dosage: 100MG IN THE MORNING, 75 MG AT NIGHT
     Route: 048
     Dates: start: 20120713, end: 20120719
  4. LAMOTRIGINE [Concomitant]
     Dosage: 25 MG MORNING/ 50 MG NIGHT
     Route: 048
     Dates: start: 20120427, end: 20120503
  5. LAMOTRIGINE [Concomitant]
     Dosage: 50 MG IN THE MORNING, 75 MG AT NIGHT
     Route: 048
     Dates: start: 20120629, end: 20120705
  6. LAMOTRIGINE [Concomitant]
     Indication: EPILEPSY
     Route: 048
     Dates: start: 20120720
  7. LAMOTRIGINE [Concomitant]
     Route: 048
     Dates: start: 20120706, end: 20120712
  8. LAMOTRIGINE [Concomitant]
     Route: 048
     Dates: start: 20120413, end: 20120419
  9. LACOSAMIDE [Suspect]
     Indication: EPILEPSY
     Route: 048
     Dates: start: 20111115

REACTIONS (1)
  - CONVULSION [None]
